FAERS Safety Report 15424930 (Version 1)
Quarter: 2018Q3

REPORT INFORMATION
  Report Type: Spontaneous
  Country: None (occurrence: US)
  Receive Date: 20180925
  Receipt Date: 20180925
  Transmission Date: 20181010
  Serious: No
  Sender: FDA-Public Use
  Company Number: US-MEDAC PHARMA, INC.-2055320

PATIENT
  Age: 77 Year
  Sex: Female
  Weight: 87.73 kg

DRUGS (18)
  1. LORAZEPAM. [Concomitant]
     Active Substance: LORAZEPAM
  2. LOSARTAN. [Concomitant]
     Active Substance: LOSARTAN
  3. ZOLOFT [Concomitant]
     Active Substance: SERTRALINE HYDROCHLORIDE
  4. PLAQUENIL [Concomitant]
     Active Substance: HYDROXYCHLOROQUINE SULFATE
  5. HYDROXYUREA. [Concomitant]
     Active Substance: HYDROXYUREA
  6. ALBUTEROL. [Concomitant]
     Active Substance: ALBUTEROL
  7. ALLOPURINOL. [Concomitant]
     Active Substance: ALLOPURINOL
  8. RASUVO [Suspect]
     Active Substance: METHOTREXATE SODIUM
     Indication: POLYARTHRITIS
     Route: 058
     Dates: start: 2016, end: 2017
  9. NAPROXEN. [Concomitant]
     Active Substance: NAPROXEN
  10. OXYCODONE AND ACETAMINOPHEN [Concomitant]
     Active Substance: ACETAMINOPHEN\OXYCODONE HYDROCHLORIDE
  11. CARVEDILOL. [Concomitant]
     Active Substance: CARVEDILOL
  12. FLONASE [Concomitant]
     Active Substance: FLUTICASONE PROPIONATE
  13. LEVOTHYROXINE. [Concomitant]
     Active Substance: LEVOTHYROXINE
  14. NORVASC [Concomitant]
     Active Substance: AMLODIPINE BESYLATE
  15. FOLIC ACID. [Concomitant]
     Active Substance: FOLIC ACID
  16. SULFASALAZINE. [Concomitant]
     Active Substance: SULFASALAZINE
  17. ASPIRIN. [Concomitant]
     Active Substance: ASPIRIN
  18. PRILOSEC [Concomitant]
     Active Substance: OMEPRAZOLE MAGNESIUM

REACTIONS (5)
  - No adverse event [None]
  - Accidental exposure to product [Recovered/Resolved]
  - Device issue [Recovered/Resolved]
  - Wrong technique in product usage process [Recovered/Resolved]
  - Exposure via skin contact [Recovered/Resolved]

NARRATIVE: CASE EVENT DATE: 20180903
